FAERS Safety Report 11894693 (Version 2)
Quarter: 2016Q1

REPORT INFORMATION
  Report Type: Spontaneous
  Country: US (occurrence: US)
  Receive Date: 20160107
  Receipt Date: 20160107
  Transmission Date: 20160526
  Serious: No
  Sender: FDA-Public Use
  Company Number: US-BAYER-2015-496874

PATIENT
  Age: 24 Year
  Sex: Female
  Weight: 46.71 kg

DRUGS (4)
  1. CORICIDIN HBP MAXIMUM STRENGTH FLU [Suspect]
     Active Substance: ACETAMINOPHEN\CHLORPHENIRAMINE MALEATE\DEXTROMETHORPHAN HYDROBROMIDE
     Dosage: UNK
  2. CORICIDIN HBP COLD AND FLU [Suspect]
     Active Substance: ACETAMINOPHEN\CHLORPHENIRAMINE MALEATE
     Dosage: UNK
  3. CLARITIN [Suspect]
     Active Substance: LORATADINE
  4. AMOXICILLIN. [Concomitant]
     Active Substance: AMOXICILLIN
     Dosage: UNK

REACTIONS (8)
  - Headache [None]
  - Drug hypersensitivity [None]
  - Palpitations [None]
  - Product use issue [None]
  - Heart rate decreased [None]
  - Underdose [None]
  - Dizziness [None]
  - Nausea [None]
